FAERS Safety Report 17752690 (Version 6)
Quarter: 2020Q2

REPORT INFORMATION
  Report Type: Spontaneous
  Country: CA (occurrence: CA)
  Receive Date: 20200506
  Receipt Date: 20200624
  Transmission Date: 20200714
  Serious: Yes (Other)
  Sender: FDA-Public Use
  Company Number: CA-PFIZER INC-2020180984

PATIENT
  Age: 44 Year
  Sex: Female

DRUGS (3)
  1. XELJANZ [Suspect]
     Active Substance: TOFACITINIB CITRATE
     Dosage: 5 MG, 2X/DAY
     Route: 048
     Dates: start: 2020
  2. METHOTREXATE. [Concomitant]
     Active Substance: METHOTREXATE
     Dosage: UNK
     Route: 065
  3. XELJANZ [Suspect]
     Active Substance: TOFACITINIB CITRATE
     Indication: COLITIS ULCERATIVE
     Dosage: 10 MG, 2X/DAY
     Route: 048
     Dates: start: 20200403, end: 2020

REACTIONS (10)
  - Product dose omission [Unknown]
  - Pouchitis [Recovered/Resolved with Sequelae]
  - Immune system disorder [Unknown]
  - Rectal haemorrhage [Recovering/Resolving]
  - Disease recurrence [Recovered/Resolved with Sequelae]
  - Arthropathy [Recovering/Resolving]
  - Dyspnoea [Unknown]
  - Blood iron decreased [Unknown]
  - Pain [Recovering/Resolving]
  - Malaise [Unknown]
